FAERS Safety Report 21093573 (Version 1)
Quarter: 2022Q3

REPORT INFORMATION
  Report Type: Spontaneous
  Country: US (occurrence: None)
  Receive Date: 20220715
  Receipt Date: 20220715
  Transmission Date: 20221027
  Serious: Yes (Death)
  Sender: FDA-Public Use
  Company Number: None

PATIENT
  Sex: Male

DRUGS (12)
  1. TEMOZOLOMIDE [Suspect]
     Active Substance: TEMOZOLOMIDE
  2. BUPROPION TAB [Concomitant]
  3. CALCIUM CIT TAB [Concomitant]
  4. COLACE C AP [Concomitant]
  5. DEXAMETHASON TAB [Concomitant]
  6. ELIQUIS [Concomitant]
     Active Substance: APIXABAN
  7. FERROUS SULF TAB [Concomitant]
  8. FLOMAX CAP [Concomitant]
  9. MIDODRINE TAB [Concomitant]
  10. PAROXETINE TAB [Concomitant]
  11. SIMVASTATIN [Concomitant]
     Active Substance: SIMVASTATIN
  12. VITAMIN D3 CAP [Concomitant]

REACTIONS (1)
  - Death [None]
